FAERS Safety Report 5761759-4 (Version None)
Quarter: 2008Q2

REPORT INFORMATION
  Report Type: 
  Country: None (occurrence: None)
  Receive Date: 20080606
  Receipt Date: 20080526
  Transmission Date: 20081010
  Serious: Yes (Death, Other)
  Sender: FDA-Public Use
  Company Number: FR-PFIZER INC-2008045337

PATIENT
  Sex: Male

DRUGS (1)
  1. SUTENT [Suspect]

REACTIONS (3)
  - DIAPHRAGMATIC RUPTURE [None]
  - HEPATIC CIRRHOSIS [None]
  - NEUROPATHY PERIPHERAL [None]
